FAERS Safety Report 7620572-3 (Version None)
Quarter: 2011Q3

REPORT INFORMATION
  Report Type: 
  Country: None (occurrence: None)
  Receive Date: 20110719
  Receipt Date: 20110708
  Transmission Date: 20111222
  Serious: Yes (Other)
  Sender: FDA-Public Use
  Company Number: BR-ROCHE-784491

PATIENT

DRUGS (4)
  1. AVASTIN [Suspect]
     Route: 065
  2. FOLINIC ACID [Suspect]
     Route: 065
  3. IRINOTECAN HCL [Suspect]
     Route: 065
  4. FLUOROURACIL [Suspect]
     Route: 065

REACTIONS (1)
  - THROMBOSIS [None]
